FAERS Safety Report 5085870-9 (Version None)
Quarter: 2006Q3

REPORT INFORMATION
  Report Type: 
  Country: None (occurrence: None)
  Receive Date: 20060817
  Receipt Date: 20060808
  Transmission Date: 20061208
  Serious: Yes (Hospitalization)
  Sender: FDA-Public Use
  Company Number: T200600868

PATIENT
  Age: 84 Year
  Sex: Male

DRUGS (3)
  1. OPTIRAY 160 [Suspect]
     Indication: COMPUTERISED TOMOGRAM
     Dosage: SINGLE, INTRAVENOUS
     Route: 042
     Dates: start: 20041124, end: 20041124
  2. RESPIRATORY SYSTEM [Concomitant]
  3. DRUGS FOR OBSTRUCTIVE AIRWAY DISEASES [Concomitant]

REACTIONS (4)
  - ACCIDENTAL EXPOSURE [None]
  - CELLULITIS [None]
  - RASH [None]
  - SCAB [None]
